FAERS Safety Report 11180506 (Version 1)
Quarter: 2015Q2

REPORT INFORMATION
  Report Type: Spontaneous
  Country: US (occurrence: US)
  Receive Date: 20150611
  Receipt Date: 20150611
  Transmission Date: 20150821
  Serious: No
  Sender: FDA-Public Use
  Company Number: US-PFIZER INC-2015189885

PATIENT
  Age: 75 Year
  Sex: Female
  Weight: 78.91 kg

DRUGS (3)
  1. IBRANCE [Suspect]
     Active Substance: PALBOCICLIB
     Indication: BREAST CANCER
     Dosage: 75 MG, DAILY
     Route: 048
     Dates: start: 20150520
  2. AVELOX [Concomitant]
     Active Substance: MOXIFLOXACIN HYDROCHLORIDE
     Dosage: 400 MG, UNK (1 TAB/D Q 8HRS )
  3. DOLOGEN [Concomitant]
     Active Substance: ACETAMINOPHEN\DEXBROMPHENIRAMINE MALEATE
     Dosage: 20 MG, UNK (1 TAB/D.)

REACTIONS (4)
  - Nail infection [Unknown]
  - Disease progression [Unknown]
  - Skin infection [Unknown]
  - Breast cancer [Unknown]

NARRATIVE: CASE EVENT DATE: 20150525
